FAERS Safety Report 16102873 (Version 2)
Quarter: 2019Q2

REPORT INFORMATION
  Report Type: Spontaneous
  Country: SI (occurrence: SI)
  Receive Date: 20190321
  Receipt Date: 20190403
  Transmission Date: 20190711
  Serious: Yes (Hospitalization, Other)
  Sender: FDA-Public Use
  Company Number: PHHY2019SI060470

PATIENT
  Age: 29 Year
  Sex: Male

DRUGS (4)
  1. LEKADOL PLUS C [Suspect]
     Active Substance: ACETAMINOPHEN\ASCORBIC ACID
     Indication: NASOPHARYNGITIS
     Dosage: UNK, (4-5 BAGS PER DAY)
     Route: 065
  2. SUMAMED [Suspect]
     Active Substance: AZITHROMYCIN ANHYDROUS
     Indication: INFLUENZA LIKE ILLNESS
  3. SUMAMED [Suspect]
     Active Substance: AZITHROMYCIN ANHYDROUS
     Indication: NASOPHARYNGITIS
     Dosage: UNK
     Route: 065
  4. LEKADOL PLUS C [Suspect]
     Active Substance: ACETAMINOPHEN\ASCORBIC ACID
     Indication: INFLUENZA LIKE ILLNESS

REACTIONS (29)
  - Pyrexia [Recovering/Resolving]
  - Cough [Recovering/Resolving]
  - Left ventricular end-diastolic pressure increased [Recovering/Resolving]
  - Liver injury [Recovering/Resolving]
  - Left ventricular failure [Recovering/Resolving]
  - Left ventricular dysfunction [Recovering/Resolving]
  - Left ventricular enlargement [Recovering/Resolving]
  - Blood bilirubin increased [Recovering/Resolving]
  - Hepatic enzyme increased [Recovering/Resolving]
  - Chromaturia [Recovering/Resolving]
  - Chest pain [Recovering/Resolving]
  - Hepatic pain [Recovering/Resolving]
  - Gamma-glutamyltransferase increased [Recovering/Resolving]
  - Drug ineffective [Unknown]
  - Tricuspid valve incompetence [Recovering/Resolving]
  - Pleural effusion [Recovering/Resolving]
  - Rash [Recovering/Resolving]
  - Myocarditis mycotic [Recovering/Resolving]
  - Malaise [Recovering/Resolving]
  - Fatigue [Recovering/Resolving]
  - Jaundice [Recovering/Resolving]
  - Ejection fraction decreased [Recovering/Resolving]
  - Hepatosplenomegaly [Recovering/Resolving]
  - Pericardial effusion [Recovering/Resolving]
  - Faeces pale [Recovering/Resolving]
  - Asthenia [Recovering/Resolving]
  - Respiratory rate increased [Recovering/Resolving]
  - Troponin increased [Recovering/Resolving]
  - C-reactive protein increased [Recovering/Resolving]
